FAERS Safety Report 6349353-8 (Version None)
Quarter: 2009Q3

REPORT INFORMATION
  Report Type: 
  Country: None (occurrence: None)
  Receive Date: 20090911
  Receipt Date: 20090908
  Transmission Date: 20100115
  Serious: Yes (Death, Hospitalization, Other)
  Sender: FDA-Public Use
  Company Number: NL-BAYER-200931425GPV

PATIENT
  Age: 66 Year
  Sex: Male

DRUGS (2)
  1. SORAFENIB [Suspect]
     Indication: METASTASES TO LUNG
     Dosage: TOTAL DAILY DOSE: 800 MG
     Route: 048
  2. SORAFENIB [Suspect]
     Route: 048

REACTIONS (8)
  - CHEST PAIN [None]
  - DYSPNOEA [None]
  - METASTASES TO LUNG [None]
  - METASTASES TO LYMPH NODES [None]
  - METASTASES TO PLEURA [None]
  - METASTATIC RENAL CELL CARCINOMA [None]
  - PERICARDIAL EFFUSION [None]
  - PLEURAL EFFUSION [None]
